FAERS Safety Report 4945438-9 (Version None)
Quarter: 2006Q1

REPORT INFORMATION
  Report Type: 
  Country: None (occurrence: None)
  Receive Date: 20060316
  Receipt Date: 20060309
  Transmission Date: 20060701
  Serious: Yes (Other)
  Sender: FDA-Public Use
  Company Number: CA-GLAXOSMITHKLINE-A0597161A

PATIENT
  Age: 56 Year
  Sex: Female
  Weight: 45 kg

DRUGS (5)
  1. AVANDIA [Suspect]
     Indication: DRUG USE FOR UNKNOWN INDICATION
     Dosage: 4MG PER DAY
     Route: 048
     Dates: start: 20050723, end: 20060101
  2. SYNTHROID [Concomitant]
     Route: 048
     Dates: start: 20050423
  3. PREVACID [Concomitant]
     Dosage: 30MG AS REQUIRED
     Route: 048
     Dates: start: 20060225
  4. REACTINE [Concomitant]
     Dates: start: 20060225
  5. UNKNOWN MEDICATION [Concomitant]
     Indication: OSTEOPOROSIS
     Route: 048
     Dates: start: 20050412

REACTIONS (7)
  - ANAEMIA [None]
  - BLOOD CHLORIDE INCREASED [None]
  - BLOOD CREATININE INCREASED [None]
  - GLYCOSYLATED HAEMOGLOBIN INCREASED [None]
  - NEUTROPENIA [None]
  - PANCYTOPENIA [None]
  - THROMBOCYTOPENIA [None]
